FAERS Safety Report 5605959-2 (Version None)
Quarter: 2008Q1

REPORT INFORMATION
  Report Type: 
  Country: None (occurrence: None)
  Receive Date: 20080129
  Receipt Date: 20080123
  Transmission Date: 20080703
  Serious: Yes (Death)
  Sender: FDA-Public Use
  Company Number: CH-AVENTIS-200810793GDDC

PATIENT
  Age: 26 Year
  Sex: Female
  Weight: 50.7 kg

DRUGS (2)
  1. EFLORNITHINE [Suspect]
     Route: 042
     Dates: start: 20071207, end: 20071215
  2. CEFTRIAXONE [Concomitant]
     Indication: CELLULITIS
     Route: 042
     Dates: start: 20071213

REACTIONS (1)
  - CONVULSION [None]
